FAERS Safety Report 10257680 (Version 2)
Quarter: 2014Q2

REPORT INFORMATION
  Report Type: Spontaneous
  Country: SE (occurrence: SE)
  Receive Date: 20140625
  Receipt Date: 20140627
  Transmission Date: 20141212
  Serious: Yes (Other)
  Sender: FDA-Public Use
  Company Number: SE-SA-2014SA079255

PATIENT
  Age: 5 Year
  Sex: Male

DRUGS (3)
  1. CEREZYME [Suspect]
     Indication: GAUCHER^S DISEASE
     Dosage: START DATE 2008/2009 DOSE:60 UNIT(S)/KILOGRAM BODYWEIGHT
     Route: 042
  2. BACLOFEN [Concomitant]
  3. ZAVESCA [Concomitant]

REACTIONS (2)
  - Parkinsonism [Unknown]
  - Dystonia [Unknown]
